FAERS Safety Report 7346539-0 (Version None)
Quarter: 2011Q1

REPORT INFORMATION
  Report Type: 
  Country: None (occurrence: None)
  Receive Date: 20110311
  Receipt Date: 20110301
  Transmission Date: 20110831
  Serious: Yes (Other)
  Sender: FDA-Public Use
  Company Number: SE-JNJFOC-20110300959

PATIENT
  Age: 56 Year
  Sex: Male

DRUGS (4)
  1. ACETAMINOPHEN W/ CODEINE [Concomitant]
     Dosage: WHEN NEEDED MAXIMUM 6 PER DAY
     Route: 065
  2. DURAGESIC-100 [Suspect]
     Indication: INTERVERTEBRAL DISC PROTRUSION
     Dosage: 100 X 3 PATCH
     Route: 062
  3. VOLTAREN [Concomitant]
     Route: 065
  4. NITRAZEPAM [Concomitant]
     Indication: SLEEP DISORDER
     Dosage: WHEN NEEDED
     Route: 065

REACTIONS (2)
  - SUICIDAL IDEATION [None]
  - DRUG INEFFECTIVE [None]
